FAERS Safety Report 7190665-6 (Version None)
Quarter: 2010Q4

REPORT INFORMATION
  Report Type: 
  Country: None (occurrence: None)
  Receive Date: 20101223
  Receipt Date: 20101214
  Transmission Date: 20110411
  Serious: Yes (Death, Hospitalization)
  Sender: FDA-Public Use
  Company Number: DE-TEVA-260213GER

PATIENT
  Sex: Female
  Weight: 61.4 kg

DRUGS (1)
  1. WARFARIN SODIUM [Suspect]
     Indication: DEEP VEIN THROMBOSIS
     Route: 048
     Dates: start: 20090324, end: 20100322

REACTIONS (4)
  - ADENOCARCINOMA [None]
  - HAEMATOMA [None]
  - PLEURAL EFFUSION [None]
  - PNEUMONIA [None]
